FAERS Safety Report 7305703-7 (Version None)
Quarter: 2011Q1

REPORT INFORMATION
  Report Type: 
  Country: None (occurrence: None)
  Receive Date: 20110222
  Receipt Date: 20110214
  Transmission Date: 20110831
  Serious: Yes (Hospitalization)
  Sender: FDA-Public Use
  Company Number: A0905640A

PATIENT
  Age: 61 Year
  Sex: Male

DRUGS (6)
  1. NEXIUM [Concomitant]
  2. AVANDIA [Suspect]
     Indication: TYPE 2 DIABETES MELLITUS
     Dosage: 2MG PER DAY
     Route: 048
     Dates: start: 20071201, end: 20100701
  3. PLAVIX [Concomitant]
  4. LISINOPRIL [Concomitant]
  5. ASPIRIN [Concomitant]
  6. LIPITOR [Concomitant]

REACTIONS (12)
  - CEREBROVASCULAR ACCIDENT [None]
  - TRANSIENT ISCHAEMIC ATTACK [None]
  - ECONOMIC PROBLEM [None]
  - ANXIETY [None]
  - CEREBRAL INFARCTION [None]
  - HEADACHE [None]
  - PAIN [None]
  - CEREBRAL ARTERIOSCLEROSIS [None]
  - DEPRESSION [None]
  - THROMBOSIS [None]
  - MENTAL DISORDER [None]
  - VENTRICULAR EXTRASYSTOLES [None]
